FAERS Safety Report 7509301-1 (Version None)
Quarter: 2011Q2

REPORT INFORMATION
  Report Type: 
  Country: None (occurrence: None)
  Receive Date: 20110527
  Receipt Date: 20110523
  Transmission Date: 20111010
  Serious: Yes (Hospitalization)
  Sender: FDA-Public Use
  Company Number: US-ABBOTT-11P-163-0728298-00

PATIENT
  Sex: Male
  Weight: 113.5 kg

DRUGS (18)
  1. IMDUR [Concomitant]
     Indication: CARDIAC DISORDER
  2. CYMBALTA [Concomitant]
     Indication: DEPRESSION
  3. ATIVAN [Concomitant]
     Indication: PRODUCT USED FOR UNKNOWN INDICATION
  4. NEXIUM [Concomitant]
     Indication: GASTROOESOPHAGEAL REFLUX DISEASE
  5. CELEBREX [Concomitant]
     Indication: PRODUCT USED FOR UNKNOWN INDICATION
  6. HUMIRA [Suspect]
     Indication: RHEUMATOID ARTHRITIS
     Dates: start: 20110401
  7. GLUCOPHAGE [Concomitant]
     Indication: DIABETES MELLITUS
  8. CRESTOR [Concomitant]
     Indication: BLOOD CHOLESTEROL ABNORMAL
  9. TENORMIN [Concomitant]
     Indication: CARDIAC DISORDER
  10. PLAVIX [Concomitant]
     Indication: CARDIAC DISORDER
  11. AMBIEN [Concomitant]
     Indication: INSOMNIA
  12. SYNTHROID [Concomitant]
     Indication: HYPOTHYROIDISM
  13. AMARYL [Concomitant]
     Indication: DIABETES MELLITUS
  14. LYRICA [Concomitant]
     Indication: PRODUCT USED FOR UNKNOWN INDICATION
  15. OXYCONTIN [Concomitant]
     Indication: PRODUCT USED FOR UNKNOWN INDICATION
  16. PREDNISONE [Concomitant]
     Indication: PRODUCT USED FOR UNKNOWN INDICATION
  17. ARAVA [Concomitant]
     Indication: RHEUMATOID ARTHRITIS
  18. VITAMIN D [Concomitant]
     Indication: VITAMIN SUPPLEMENTATION

REACTIONS (4)
  - RECTAL HAEMORRHAGE [None]
  - CARDIAC ANEURYSM [None]
  - AORTIC ANEURYSM [None]
  - ANAEMIA [None]
